FAERS Safety Report 18955154 (Version 4)
Quarter: 2022Q1

REPORT INFORMATION
  Report Type: Report from Study
  Country: US (occurrence: US)
  Receive Date: 20210301
  Receipt Date: 20220322
  Transmission Date: 20220423
  Serious: Yes (Other)
  Sender: FDA-Public Use
  Company Number: US-TAKEDA-2020TUS004119

PATIENT
  Sex: Male

DRUGS (17)
  1. VEDOLIZUMAB [Suspect]
     Active Substance: VEDOLIZUMAB
     Indication: Colitis ulcerative
     Dosage: 300 MILLIGRAM, Q6WEEKS
     Route: 042
  2. VEDOLIZUMAB [Suspect]
     Active Substance: VEDOLIZUMAB
     Indication: Blood pressure increased
  3. VEDOLIZUMAB [Suspect]
     Active Substance: VEDOLIZUMAB
     Indication: Generalised anxiety disorder
  4. VEDOLIZUMAB [Suspect]
     Active Substance: VEDOLIZUMAB
     Indication: Red blood cell abnormality
  5. VEDOLIZUMAB [Suspect]
     Active Substance: VEDOLIZUMAB
     Indication: Panic disorder
  6. VEDOLIZUMAB [Suspect]
     Active Substance: VEDOLIZUMAB
     Indication: Dermatophytosis of nail
  7. VEDOLIZUMAB [Suspect]
     Active Substance: VEDOLIZUMAB
     Indication: Blood test abnormal
  8. VEDOLIZUMAB [Suspect]
     Active Substance: VEDOLIZUMAB
     Indication: Hyperlipidaemia
  9. VEDOLIZUMAB [Suspect]
     Active Substance: VEDOLIZUMAB
     Indication: Rhinitis allergic
  10. VEDOLIZUMAB [Suspect]
     Active Substance: VEDOLIZUMAB
     Indication: Immune system disorder
  11. VEDOLIZUMAB [Suspect]
     Active Substance: VEDOLIZUMAB
     Indication: Radiculopathy
  12. VEDOLIZUMAB [Suspect]
     Active Substance: VEDOLIZUMAB
     Indication: Viral infection
  13. VEDOLIZUMAB [Suspect]
     Active Substance: VEDOLIZUMAB
     Indication: Back pain
  14. VEDOLIZUMAB [Suspect]
     Active Substance: VEDOLIZUMAB
     Indication: Lumbar radiculopathy
  15. VEDOLIZUMAB [Suspect]
     Active Substance: VEDOLIZUMAB
     Indication: Rash
  16. VEDOLIZUMAB [Suspect]
     Active Substance: VEDOLIZUMAB
     Indication: Abdominal pain upper
  17. VEDOLIZUMAB [Suspect]
     Active Substance: VEDOLIZUMAB
     Indication: Enzyme level abnormal

REACTIONS (4)
  - Colitis ulcerative [Unknown]
  - Stress [Unknown]
  - Hypersomnia [Unknown]
  - Off label use [Unknown]
